FAERS Safety Report 10433732 (Version 2)
Quarter: 2014Q4

REPORT INFORMATION
  Report Type: Spontaneous
  Country: FR (occurrence: FR)
  Receive Date: 20140905
  Receipt Date: 20141105
  Transmission Date: 20150528
  Serious: Yes (Hospitalization)
  Sender: FDA-Public Use
  Company Number: FR-SA-2014SA117866

PATIENT
  Age: 93 Year
  Sex: Female

DRUGS (10)
  1. CLINDAMYCIN [Suspect]
     Active Substance: CLINDAMYCIN\CLINDAMYCIN PHOSPHATE
     Indication: ERYSIPELAS
     Dosage: STRENGTH-600 MG/4 ML
     Route: 042
     Dates: start: 20140804, end: 20140809
  2. PENICILLIN G [Suspect]
     Active Substance: PENICILLIN G
     Indication: ERYSIPELAS
     Dosage: STRENGTH-5000000 IU
     Route: 042
     Dates: start: 20140808, end: 20140809
  3. KARDEGIC [Concomitant]
     Active Substance: ASPIRIN LYSINE
  4. EFFERALGAN [Concomitant]
     Active Substance: ACETAMINOPHEN
  5. NISISCO [Concomitant]
     Active Substance: HYDROCHLOROTHIAZIDE\VALSARTAN
     Dates: end: 20140804
  6. UVEDOSE [Concomitant]
     Active Substance: CHOLECALCIFEROL
     Dates: start: 20140807, end: 20140807
  7. LOVENOX [Suspect]
     Active Substance: ENOXAPARIN SODIUM
     Dosage: STRENGTH-0.4 ML
     Route: 065
     Dates: start: 20140804, end: 20140809
  8. AMOXICILLIN. [Suspect]
     Active Substance: AMOXICILLIN
     Indication: ERYSIPELAS
     Dosage: STRENGTH-1 G
     Route: 042
     Dates: start: 20140804, end: 20140808
  9. LEVOTHYROX [Concomitant]
     Active Substance: LEVOTHYROXINE
     Dosage: 75 MICROGRAM ONE OTHER DAY AND 100 MICROGRAM ONE OTHER DAY
  10. VITAMINS [Concomitant]
     Active Substance: VITAMINS

REACTIONS (1)
  - Acute generalised exanthematous pustulosis [Recovered/Resolved]

NARRATIVE: CASE EVENT DATE: 20140809
